FAERS Safety Report 10087030 (Version 3)
Quarter: 2014Q2

REPORT INFORMATION
  Report Type: Spontaneous
  Country: BR (occurrence: BR)
  Receive Date: 20140418
  Receipt Date: 20140509
  Transmission Date: 20141212
  Serious: Yes (Hospitalization)
  Sender: FDA-Public Use
  Company Number: BR-ELI_LILLY_AND_COMPANY-BR201402007923

PATIENT
  Age: 38 Year
  Sex: Female

DRUGS (3)
  1. CYMBALTA [Suspect]
     Indication: PRODUCT USED FOR UNKNOWN INDICATION
     Dosage: 30 MG, UNKNOWN
     Route: 065
  2. CYMBALTA [Suspect]
     Dosage: 60 MG, UNKNOWN
     Route: 065
  3. CYMBALTA [Suspect]
     Dosage: 60 MG, UNKNOWN
     Route: 065

REACTIONS (5)
  - Syncope [Recovered/Resolved]
  - Headache [Unknown]
  - Dysstasia [Unknown]
  - Withdrawal syndrome [Unknown]
  - Asthenia [Recovered/Resolved]
